FAERS Safety Report 13181255 (Version 1)
Quarter: 2017Q1

REPORT INFORMATION
  Report Type: Spontaneous
  Country: US (occurrence: US)
  Receive Date: 20170202
  Receipt Date: 20170202
  Transmission Date: 20170428
  Serious: No
  Sender: FDA-Public Use
  Company Number: US-SMITH AND NEPHEW, INC-2016SMT01074

PATIENT
  Age: 68 Year
  Sex: Male
  Weight: 89.34 kg

DRUGS (7)
  1. REGRANEX [Suspect]
     Active Substance: BECAPLERMIN
     Dosage: UNK, 1X/DAY
     Dates: start: 20161209
  2. METFORMIN [Concomitant]
     Active Substance: METFORMIN HYDROCHLORIDE
     Dosage: UNK, 1X/DAY
  3. HUMALOG [Concomitant]
     Active Substance: INSULIN LISPRO
  4. CRESTOR [Concomitant]
     Active Substance: ROSUVASTATIN CALCIUM
     Dosage: 10 MG, 1X/DAY
  5. REGRANEX [Suspect]
     Active Substance: BECAPLERMIN
     Indication: DIABETIC ULCER
     Dosage: UNK, 1X/DAY
     Route: 061
     Dates: start: 20161101, end: 20161123
  6. LANTUS [Concomitant]
     Active Substance: INSULIN GLARGINE
  7. LEVOTHYROXINE. [Concomitant]
     Active Substance: LEVOTHYROXINE
     Dosage: 200 ?G, 1X/DAY

REACTIONS (3)
  - Wound infection [Recovering/Resolving]
  - Incorrect drug administration duration [Recovered/Resolved]
  - Wound complication [Not Recovered/Not Resolved]

NARRATIVE: CASE EVENT DATE: 20161116
